FAERS Safety Report 9626911 (Version 2)
Quarter: 2013Q4

REPORT INFORMATION
  Report Type: Report from Study
  Country: NL (occurrence: NL)
  Receive Date: 20131016
  Receipt Date: 20131025
  Transmission Date: 20140711
  Serious: Yes (Other)
  Sender: FDA-Public Use
  Company Number: NL-PFIZER INC-2013296034

PATIENT
  Age: 73 Year
  Sex: Female

DRUGS (3)
  1. CLOMIPRAMINE [Suspect]
     Indication: ANTIDEPRESSANT THERAPY
     Dosage: 75 MG, DAILY
  2. PANTOPRAZOLE [Concomitant]
     Dosage: UNK
  3. ETORICOXIB [Concomitant]
     Dosage: UNK

REACTIONS (2)
  - Hyponatraemia [Unknown]
  - Inappropriate antidiuretic hormone secretion [Unknown]
